FAERS Safety Report 5113827-8 (Version None)
Quarter: 2006Q3

REPORT INFORMATION
  Report Type: 
  Country: None (occurrence: None)
  Receive Date: 20060925
  Receipt Date: 20060914
  Transmission Date: 20061208
  Serious: Yes (Other)
  Sender: FDA-Public Use
  Company Number: PHBS2006BR14389

PATIENT
  Age: 55 Year
  Sex: Male
  Weight: 88 kg

DRUGS (2)
  1. ATACAND HCT [Concomitant]
     Indication: BLOOD PRESSURE ABNORMAL
     Dosage: 1 DF, Q48H
     Route: 048
  2. CATAFLAM [Suspect]
     Indication: PHARYNGOLARYNGEAL PAIN
     Dosage: 50 MG/DAY
     Route: 048
     Dates: start: 20060912, end: 20060912

REACTIONS (4)
  - DYSPNOEA [None]
  - FORMICATION [None]
  - PRURITUS [None]
  - SWOLLEN TONGUE [None]
